FAERS Safety Report 5268352-0 (Version None)
Quarter: 2007Q1

REPORT INFORMATION
  Report Type: 
  Country: None (occurrence: None)
  Receive Date: 20070314
  Receipt Date: 20070314
  Transmission Date: 20070707
  Serious: Yes (Hospitalization)
  Sender: FDA-Public Use
  Company Number: None

PATIENT
  Sex: Female
  Weight: 80.5 kg

DRUGS (3)
  1. VELCADE [Suspect]
     Dosage: 6.4 MG
  2. THALOMID [Suspect]
     Dosage: 1050 MG
  3. DEXAMETHASONE [Suspect]
     Dosage: 160 MG

REACTIONS (10)
  - BLOOD IMMUNOGLOBULIN A INCREASED [None]
  - BONE PAIN [None]
  - CONDITION AGGRAVATED [None]
  - DISEASE PROGRESSION [None]
  - DYSPNOEA [None]
  - LIVER FUNCTION TEST ABNORMAL [None]
  - OEDEMA PERIPHERAL [None]
  - PITTING OEDEMA [None]
  - REFUSAL OF TREATMENT BY PATIENT [None]
  - REFUSAL OF TREATMENT BY RELATIVE [None]
